FAERS Safety Report 12632325 (Version 2)
Quarter: 2016Q3

REPORT INFORMATION
  Report Type: Spontaneous
  Country: US (occurrence: US)
  Receive Date: 20160808
  Receipt Date: 20160808
  Transmission Date: 20161109
  Serious: No
  Sender: FDA-Public Use
  Company Number: US-BEH-2016062518

PATIENT
  Age: 59 Year
  Sex: Female
  Weight: 100 kg

DRUGS (37)
  1. FERROUS GLUCONATE [Concomitant]
     Active Substance: FERROUS GLUCONATE
  2. ASPIRIN. [Concomitant]
     Active Substance: ASPIRIN
  3. OMEGA 3 FISH OIL [Concomitant]
     Active Substance: FISH OIL\OMEGA-3 FATTY ACIDS
  4. HIZENTRA [Suspect]
     Active Substance: HUMAN IMMUNOGLOBULIN G
     Indication: IMMUNODEFICIENCY COMMON VARIABLE
     Route: 058
  5. SYMBICORT [Concomitant]
     Active Substance: BUDESONIDE\FORMOTEROL FUMARATE DIHYDRATE
  6. LISINOPRIL. [Concomitant]
     Active Substance: LISINOPRIL
  7. LANTUS [Concomitant]
     Active Substance: INSULIN GLARGINE
  8. LITHIUM CARBONATE. [Concomitant]
     Active Substance: LITHIUM CARBONATE
  9. ZINC [Concomitant]
     Active Substance: ZINC\ZINC CHLORIDE
  10. WITCH-HAZEL [Concomitant]
  11. FLUTICASONE PROP [Concomitant]
  12. DIPHENHYDRAMINE. [Concomitant]
     Active Substance: DIPHENHYDRAMINE
  13. CLOZAPINE. [Concomitant]
     Active Substance: CLOZAPINE
  14. VITAMIN D [Concomitant]
     Active Substance: CHOLECALCIFEROL
  15. KEFLEX [Concomitant]
     Active Substance: CEPHALEXIN
  16. MECLIZINE [Concomitant]
     Active Substance: MECLIZINE HYDROCHLORIDE
  17. FLORANEX [Concomitant]
     Active Substance: LACTOBACILLUS ACIDOPHILUS\LACTOBACILLUS DELBRUECKII SUBSP. BULGARICUS
  18. ALBUTEROL SULF [Concomitant]
  19. EPIPEN [Concomitant]
     Active Substance: EPINEPHRINE
  20. NEURONTIN [Concomitant]
     Active Substance: GABAPENTIN
  21. SIMVASTATIN. [Concomitant]
     Active Substance: SIMVASTATIN
  22. LORAZEPAM. [Concomitant]
     Active Substance: LORAZEPAM
  23. ALEVE [Concomitant]
     Active Substance: NAPROXEN SODIUM
  24. LEVOTHYROXINE. [Concomitant]
     Active Substance: LEVOTHYROXINE
  25. CALCIUM 600 [Concomitant]
  26. NYSTATIN. [Concomitant]
     Active Substance: NYSTATIN
  27. MIDODRINE [Concomitant]
     Active Substance: MIDODRINE
  28. L-LYSINE [Concomitant]
     Active Substance: LYSINE
  29. SEROQUEL XR [Concomitant]
     Active Substance: QUETIAPINE FUMARATE
  30. FORADIL [Concomitant]
     Active Substance: FORMOTEROL FUMARATE
  31. FIORINAL [Concomitant]
     Active Substance: ASPIRIN\BUTALBITAL\CAFFEINE
  32. REMERON [Concomitant]
     Active Substance: MIRTAZAPINE
  33. KLONOPIN [Concomitant]
     Active Substance: CLONAZEPAM
  34. HUMALOG [Concomitant]
     Active Substance: INSULIN LISPRO
  35. LANSOPRAZOLE. [Concomitant]
     Active Substance: LANSOPRAZOLE
  36. HYDROXYZINE [Concomitant]
     Active Substance: HYDROXYZINE\HYDROXYZINE HYDROCHLORIDE
  37. CRANBERRY. [Concomitant]
     Active Substance: CRANBERRY

REACTIONS (4)
  - Folliculitis [Unknown]
  - Administration site haemorrhage [Unknown]
  - Urinary tract infection [Unknown]
  - Influenza [Unknown]

NARRATIVE: CASE EVENT DATE: 201602
